FAERS Safety Report 5082024-7 (Version None)
Quarter: 2006Q3

REPORT INFORMATION
  Report Type: 
  Country: None (occurrence: None)
  Receive Date: 20060817
  Receipt Date: 20060811
  Transmission Date: 20061208
  Serious: Yes (Life-Threatening, Hospitalization, Other)
  Sender: FDA-Public Use
  Company Number: PHFR2006GB02491

PATIENT
  Age: 58 Year
  Sex: Female
  Weight: 62 kg

DRUGS (4)
  1. TERBINAFINE HCL [Suspect]
     Indication: ONYCHOMYCOSIS
     Dosage: 1 PER DAY
     Route: 048
     Dates: start: 20060329, end: 20060512
  2. CO-AMOXICLAV [Concomitant]
     Dosage: 3 PER DAY
     Route: 065
     Dates: start: 20060703
  3. TIOCONAZOLE [Concomitant]
     Dosage: 2 PER DAY
     Route: 065
     Dates: start: 20060703
  4. ENSURE PLUS [Concomitant]
     Route: 065
     Dates: end: 20060602

REACTIONS (3)
  - DYSGEUSIA [None]
  - EATING DISORDER [None]
  - FLUID INTAKE REDUCED [None]
